FAERS Safety Report 7276549-3 (Version None)
Quarter: 2011Q1

REPORT INFORMATION
  Report Type: 
  Country: None (occurrence: None)
  Receive Date: 20110204
  Receipt Date: 20110125
  Transmission Date: 20110831
  Serious: Yes (Life-Threatening)
  Sender: FDA-Public Use
  Company Number: IT-BAYER-2011-008316

PATIENT
  Sex: Female

DRUGS (3)
  1. TAPAZOLE [Concomitant]
  2. CIPROXIN 500 MG FILM-COATED TABLETS [Suspect]
     Indication: PRODUCT USED FOR UNKNOWN INDICATION
     Dosage: 500 MG, ONCE
     Route: 048
     Dates: start: 20110119, end: 20110119
  3. MYFORTIC [Concomitant]

REACTIONS (3)
  - ERYTHEMA [None]
  - DYSPNOEA [None]
  - THROAT TIGHTNESS [None]
